FAERS Safety Report 8826960 (Version 1)
Quarter: 2012Q4

REPORT INFORMATION
  Report Type: 
  Country: JP (occurrence: JP)
  Receive Date: 20121005
  Receipt Date: 20121005
  Transmission Date: 20130627
  Serious: Yes (Death)
  Sender: FDA-Public Use
  Company Number: JP-BAXTER-2012BAX018230

PATIENT
  Age: 83 Year
  Sex: Male
  Weight: 60.2 kg

DRUGS (4)
  1. FEIBA [Suspect]
     Indication: HAEMOSTASIS
     Route: 042
     Dates: start: 20120811, end: 20120812
  2. FEIBA [Suspect]
     Indication: ACQUIRED HEMOPHILIA
  3. PREDONINE [Suspect]
     Indication: HAEMOSTASIS
     Route: 065
     Dates: start: 20120811
  4. NOVOSEVEN [Concomitant]
     Indication: HAEMOSTASIS
     Route: 042
     Dates: start: 20120812, end: 20120913

REACTIONS (2)
  - Pneumonia [Fatal]
  - Drug effect incomplete [Unknown]
